FAERS Safety Report 9094002 (Version 1)
Quarter: 2013Q1

REPORT INFORMATION
  Report Type: Spontaneous
  Country: KP (occurrence: KP)
  Receive Date: 20130201
  Receipt Date: 20130201
  Transmission Date: 20140127
  Serious: Yes (Hospitalization)
  Sender: FDA-Public Use
  Company Number: KP-ROCHE-1186142

PATIENT
  Age: 69 Year
  Sex: Female

DRUGS (1)
  1. BONVIVA [Suspect]
     Indication: PRODUCT USED FOR UNKNOWN INDICATION
     Route: 042

REACTIONS (1)
  - Epidermal necrosis [Recovering/Resolving]
